FAERS Safety Report 8934124 (Version 1)
Quarter: 2012Q4

REPORT INFORMATION
  Report Type: 
  Country: US (occurrence: US)
  Receive Date: 20121129
  Receipt Date: 20121129
  Transmission Date: 20130627
  Serious: No
  Sender: FDA-Public Use
  Company Number: US-GLAXOSMITHKLINE-A0970514A

PATIENT
  Age: 58 Year
  Sex: Male

DRUGS (11)
  1. WELLBUTRIN SR [Suspect]
     Indication: ANXIETY
     Dosage: 200MG Twice per day
     Route: 048
     Dates: start: 2002
  2. FISH OIL [Concomitant]
  3. HCTZ [Concomitant]
  4. LEVOTHYROXINE [Concomitant]
  5. LISINOPRIL [Concomitant]
  6. GEMFIBROZIL [Concomitant]
  7. METOPROLOL TARTRATE [Concomitant]
  8. LOVASTATIN [Concomitant]
  9. ASPIRIN [Concomitant]
  10. MULTIVITAMIN [Concomitant]
  11. OMEPRAZOLE MAGNESIUM [Concomitant]

REACTIONS (2)
  - Eructation [Unknown]
  - Parosmia [Unknown]
